FAERS Safety Report 9553646 (Version 4)
Quarter: 2014Q2

REPORT INFORMATION
  Report Type: Spontaneous
  Country: US (occurrence: None)
  Receive Date: 20130815
  Receipt Date: 20140429
  Transmission Date: 20141212
  Serious: Yes (Hospitalization, Other)
  Sender: FDA-Public Use
  Company Number: ADR-2012-01128

PATIENT
  Sex: Female

DRUGS (2)
  1. BACLOFEN [Suspect]
     Indication: MUSCLE SPASTICITY
  2. BACLOFEN [Suspect]

REACTIONS (17)
  - No therapeutic response [None]
  - Anxiety [None]
  - Device ineffective [None]
  - Head discomfort [None]
  - Adverse drug reaction [None]
  - Stress [None]
  - Cerebrospinal fluid leakage [None]
  - Fall [None]
  - Feeling abnormal [None]
  - Mental impairment [None]
  - Asthenia [None]
  - Puncture site reaction [None]
  - Speech disorder [None]
  - Abasia [None]
  - Hyperaesthesia [None]
  - Malaise [None]
  - Memory impairment [None]
